FAERS Safety Report 5924855-4 (Version None)
Quarter: 2008Q4

REPORT INFORMATION
  Report Type: 
  Country: None (occurrence: None)
  Receive Date: 20081017
  Receipt Date: 20081017
  Transmission Date: 20090506
  Serious: Yes (Other)
  Sender: FDA-Public Use
  Company Number: None

PATIENT
  Sex: Male
  Weight: 99.7913 kg

DRUGS (1)
  1. CLONAZEPAM [Suspect]
     Indication: POST-TRAUMATIC STRESS DISORDER
     Dosage: 0.5MG BID PO; 1MG QHS PO
     Route: 048
     Dates: start: 20080814, end: 20081005

REACTIONS (1)
  - ANXIETY [None]
